FAERS Safety Report 20611210 (Version 1)
Quarter: 2022Q1

REPORT INFORMATION
  Report Type: Spontaneous
  Country: US (occurrence: US)
  Receive Date: 20220318
  Receipt Date: 20220318
  Transmission Date: 20220424
  Serious: Yes (Other)
  Sender: FDA-Public Use
  Company Number: US-NOVARTISTESTPH-NVSC2022US060321

PATIENT
  Age: 80 Year
  Sex: Female
  Weight: 54.422 kg

DRUGS (1)
  1. XIIDRA [Suspect]
     Active Substance: LIFITEGRAST
     Indication: Dry eye
     Dosage: 50 MG, BID
     Route: 047
     Dates: start: 20220201, end: 20220310

REACTIONS (1)
  - Lacrimation increased [Recovered/Resolved]

NARRATIVE: CASE EVENT DATE: 20220201
